FAERS Safety Report 5444705-2 (Version None)
Quarter: 2007Q3

REPORT INFORMATION
  Report Type: 
  Country: None (occurrence: None)
  Receive Date: 20070906
  Receipt Date: 20070209
  Transmission Date: 20080115
  Serious: Yes (Hospitalization)
  Sender: FDA-Public Use
  Company Number: A0638950A

PATIENT
  Sex: Male

DRUGS (2)
  1. REQUIP [Suspect]
     Indication: TREMOR
     Route: 048
     Dates: start: 20000801, end: 20051001
  2. MIRAPEX [Suspect]
     Indication: TREMOR
     Route: 065
     Dates: start: 20000801, end: 20051001

REACTIONS (4)
  - CONFUSIONAL STATE [None]
  - DELIRIUM [None]
  - OBSESSIVE-COMPULSIVE DISORDER [None]
  - PATHOLOGICAL GAMBLING [None]
